FAERS Safety Report 18312579 (Version 2)
Quarter: 2020Q4

REPORT INFORMATION
  Report Type: Report from Study
  Country: ES (occurrence: ES)
  Receive Date: 20200925
  Receipt Date: 20201020
  Transmission Date: 20210113
  Serious: Yes (Other)
  Sender: FDA-Public Use
  Company Number: ES-VIIV HEALTHCARE LIMITED-ES2020GSK188433

PATIENT
  Age: 89 Year
  Sex: Female
  Weight: 55.8 kg

DRUGS (4)
  1. CEFTRIAXONE. [Suspect]
     Active Substance: CEFTRIAXONE
     Indication: BACTERIAL INFECTION
     Dosage: 2 G, QD
     Route: 042
     Dates: start: 20200913, end: 20200918
  2. REMDESIVIR. [Suspect]
     Active Substance: REMDESIVIR
     Indication: COVID-19
     Dosage: 100 MG, QD
     Route: 042
     Dates: start: 20200915, end: 20200919
  3. MARAVIROC [Suspect]
     Active Substance: MARAVIROC
     Indication: COVID-19
     Dosage: UNK UNK, BID
     Dates: start: 20200915
  4. ENOXAPARIN [Concomitant]
     Active Substance: ENOXAPARIN
     Indication: COVID-19
     Dosage: 40 MG, QD
     Route: 058
     Dates: start: 20200914, end: 20201013

REACTIONS (1)
  - Hypertransaminasaemia [Recovered/Resolved]

NARRATIVE: CASE EVENT DATE: 20200917
